FAERS Safety Report 6524593-3 (Version None)
Quarter: 2010Q1

REPORT INFORMATION
  Report Type: 
  Country: None (occurrence: None)
  Receive Date: 20100104
  Receipt Date: 20091222
  Transmission Date: 20100710
  Serious: Yes (Other)
  Sender: FDA-Public Use
  Company Number: PHEH2009US15265

PATIENT
  Sex: Female
  Weight: 51.247 kg

DRUGS (4)
  1. RECLAST [Suspect]
     Indication: OSTEOPOROSIS
     Dosage: 5 MG, ONCE/SINGLE
     Dates: start: 20090930, end: 20090930
  2. FIBERCON (POLYCARBOPHIL) [Concomitant]
  3. DULCOLAX [Concomitant]
  4. THYROID TAB [Concomitant]

REACTIONS (3)
  - CONSTIPATION [None]
  - DIVERTICULUM [None]
  - HAEMORRHOIDS [None]
